FAERS Safety Report 20529812 (Version 2)
Quarter: 2022Q1

REPORT INFORMATION
  Report Type: Other
  Country: JP (occurrence: None)
  Receive Date: 20220301
  Receipt Date: 20220307
  Transmission Date: 20220423
  Serious: Yes (Other)
  Sender: FDA-Public Use
  Company Number: JP-CHUGAI-2022006219

PATIENT
  Age: 71 Year
  Sex: Male

DRUGS (2)
  1. AVASTIN [Suspect]
     Active Substance: BEVACIZUMAB
     Indication: Cerebral radiation injury
     Dosage: UNK UNK, QD
     Route: 041
     Dates: start: 20210201, end: 20210201
  2. AVASTIN [Suspect]
     Active Substance: BEVACIZUMAB
     Dosage: UNK UNK, QD
     Route: 041
     Dates: start: 20210422, end: 20210422

REACTIONS (2)
  - Tumour haemorrhage [Unknown]
  - Off label use [Unknown]
